FAERS Safety Report 24782961 (Version 1)
Quarter: 2024Q4

REPORT INFORMATION
  Report Type: Spontaneous
  Country: ES (occurrence: ES)
  Receive Date: 20241227
  Receipt Date: 20241227
  Transmission Date: 20250115
  Serious: Yes (Other)
  Sender: RANBAXY
  Company Number: ES-SUN PHARMACEUTICAL INDUSTRIES LTD-2024R1-486647

PATIENT
  Age: 53 Year
  Sex: Male

DRUGS (5)
  1. OMEPRAZOLE [Suspect]
     Active Substance: OMEPRAZOLE
     Indication: Chronic hepatitis
     Dosage: 20 MILLIGRAM
     Route: 065
  2. MYCOPHENOLIC ACID [Suspect]
     Active Substance: MYCOPHENOLIC ACID
     Indication: Chronic hepatitis
     Dosage: 500 MILLIGRAM
     Route: 065
  3. PREDNISONE [Suspect]
     Active Substance: PREDNISONE
     Indication: Chronic hepatitis
     Dosage: 20 MILLIGRAM
     Route: 065
  4. URSODIOL [Suspect]
     Active Substance: URSODIOL
     Indication: Chronic hepatitis
     Dosage: 450 MILLIGRAM
     Route: 065
  5. FLUVASTATIN [Suspect]
     Active Substance: FLUVASTATIN SODIUM
     Indication: Chronic hepatitis
     Dosage: 20 MILLIGRAM, OD
     Route: 065

REACTIONS (2)
  - Tinea capitis [Unknown]
  - Trichophytosis [Unknown]
